FAERS Safety Report 4534682-0 (Version None)
Quarter: 2004Q4

REPORT INFORMATION
  Report Type: 
  Country: None (occurrence: None)
  Receive Date: 20041214
  Receipt Date: 20040929
  Transmission Date: 20050328
  Serious: No
  Sender: FDA-Public Use
  Company Number: 2004238598US

PATIENT
  Sex: Female

DRUGS (9)
  1. BEXTRA [Suspect]
     Dosage: ORAL
     Route: 048
     Dates: end: 20040705
  2. HUMIRA [Suspect]
     Indication: RHEUMATOID ARTHRITIS
     Dosage: 40 MG, SUBCUTANEOUS
     Route: 058
     Dates: start: 20040401
  3. MELOXICAM (MELOXICAM) [Concomitant]
  4. LEXAPRO [Concomitant]
  5. CETIRIZINE HCL [Concomitant]
  6. OXYBUTYNIN CHLORIDE [Concomitant]
  7. PRINZIDE [Concomitant]
  8. ZOLPIDEM TARTRATE [Concomitant]
  9. CYCLOBENZAPRINE HYDROCHLORIDE [Concomitant]

REACTIONS (4)
  - COUGH [None]
  - DIARRHOEA [None]
  - DRUG INTERACTION [None]
  - HEPATIC ENZYME INCREASED [None]
